FAERS Safety Report 19487450 (Version 10)
Quarter: 2021Q4

REPORT INFORMATION
  Report Type: Report from Study
  Country: US (occurrence: US)
  Receive Date: 20210702
  Receipt Date: 20211228
  Transmission Date: 20220303
  Serious: Yes (Hospitalization, Other)
  Sender: FDA-Public Use
  Company Number: US-NOVARTISPH-NVSC2021US138080

PATIENT
  Sex: Male

DRUGS (3)
  1. ENTRESTO [Suspect]
     Active Substance: SACUBITRIL\VALSARTAN
     Indication: Cardiac failure chronic
     Dosage: 1 DF, BID (24/26MG)
     Route: 065
     Dates: start: 20210614, end: 202107
  2. ENTRESTO [Suspect]
     Active Substance: SACUBITRIL\VALSARTAN
     Dosage: 49/51 MG (BID)
     Route: 065
     Dates: start: 202108
  3. CARVEDILOL [Suspect]
     Active Substance: CARVEDILOL
     Indication: Hypertension
     Dosage: 3.125 MG
     Route: 048
     Dates: start: 202109

REACTIONS (10)
  - Loss of consciousness [Recovering/Resolving]
  - Fall [Recovering/Resolving]
  - Facial bones fracture [Recovering/Resolving]
  - Dizziness [Not Recovered/Not Resolved]
  - Hypotension [Not Recovered/Not Resolved]
  - Dyspnoea exertional [Not Recovered/Not Resolved]
  - Anxiety [Recovered/Resolved]
  - Memory impairment [Unknown]
  - Illness [Recovering/Resolving]
  - Asthenia [Unknown]
